FAERS Safety Report 11464331 (Version 1)
Quarter: 2015Q3

REPORT INFORMATION
  Report Type: Spontaneous
  Country: US (occurrence: US)
  Receive Date: 20150831
  Receipt Date: 20150831
  Transmission Date: 20151125
  Serious: No
  Sender: FDA-Public Use
  Company Number: US-ELI_LILLY_AND_COMPANY-US201108000761

PATIENT
  Age: 41 Year
  Sex: Female

DRUGS (5)
  1. CYMBALTA [Suspect]
     Active Substance: DULOXETINE HYDROCHLORIDE
     Indication: BACK PAIN
     Dosage: 60 MG, QD
     Dates: start: 201007
  2. CYMBALTA [Suspect]
     Active Substance: DULOXETINE HYDROCHLORIDE
     Dosage: 60 MG, QD
  3. VICODIN [Concomitant]
     Active Substance: ACETAMINOPHEN\HYDROCODONE BITARTRATE
  4. CYMBALTA [Suspect]
     Active Substance: DULOXETINE HYDROCHLORIDE
     Dosage: 60 MG, QD
  5. OXYCODONE [Concomitant]
     Active Substance: OXYCODONE

REACTIONS (9)
  - Drug effect incomplete [Not Recovered/Not Resolved]
  - Peripheral swelling [Unknown]
  - Drug dose omission [Recovered/Resolved]
  - Abnormal dreams [Unknown]
  - Muscle spasms [Unknown]
  - Night sweats [Unknown]
  - Vomiting [Recovered/Resolved]
  - Screaming [Unknown]
  - Drug withdrawal syndrome [Recovered/Resolved]
